FAERS Safety Report 5128166-9 (Version None)
Quarter: 2006Q4

REPORT INFORMATION
  Report Type: 
  Country: None (occurrence: None)
  Receive Date: 20061017
  Receipt Date: 20061005
  Transmission Date: 20070319
  Serious: Yes (Disabling, Other)
  Sender: FDA-Public Use
  Company Number: PHBS2006IT15703

PATIENT
  Age: 67 Year
  Sex: Male

DRUGS (2)
  1. AREDIA [Suspect]
     Indication: MULTIPLE MYELOMA
     Dosage: 90 MG CYCLIC
     Route: 042
     Dates: start: 19990801, end: 19991201
  2. ZOMETA [Suspect]
     Indication: MULTIPLE MYELOMA
     Dosage: 4 MG, QMO
     Route: 042
     Dates: start: 20000101, end: 20060201

REACTIONS (4)
  - BONE DEBRIDEMENT [None]
  - BONE DISORDER [None]
  - OSTEITIS [None]
  - OSTEOMYELITIS [None]
